FAERS Safety Report 24680514 (Version 1)
Quarter: 2024Q4

REPORT INFORMATION
  Report Type: Spontaneous
  Country: DE (occurrence: DE)
  Receive Date: 20241129
  Receipt Date: 20241129
  Transmission Date: 20250115
  Serious: Yes (Other)
  Sender: PFIZER
  Company Number: DE-009507513-2411DEU006244

PATIENT
  Age: 59 Year
  Sex: Female

DRUGS (4)
  1. EPIRUBICIN HYDROCHLORIDE [Suspect]
     Active Substance: EPIRUBICIN HYDROCHLORIDE
     Indication: Invasive lobular breast carcinoma
     Dosage: UNK
     Dates: start: 2024
  2. CYCLOPHOSPHAMIDE [Suspect]
     Active Substance: CYCLOPHOSPHAMIDE
     Indication: Invasive lobular breast carcinoma
     Dosage: UNK
     Dates: start: 2024
  3. PACLITAXEL [Suspect]
     Active Substance: PACLITAXEL
     Indication: Invasive lobular breast carcinoma
     Dosage: WEEKLY FOR 11 CYCLES
     Dates: start: 2024
  4. KEYTRUDA [Suspect]
     Active Substance: PEMBROLIZUMAB
     Indication: Invasive lobular breast carcinoma
     Dosage: UNK UNK, EVERY 3 WEEKS
     Dates: start: 202401, end: 202407

REACTIONS (6)
  - Pancytopenia [Unknown]
  - Mastectomy [Unknown]
  - Sentinel lymphadenectomy [Unknown]
  - Fatigue [Unknown]
  - Computerised tomogram thorax abnormal [Unknown]
  - Axillary lymphadenectomy [Unknown]

NARRATIVE: CASE EVENT DATE: 20240101
